FAERS Safety Report 24247745 (Version 1)
Quarter: 2024Q3

REPORT INFORMATION
  Report Type: Spontaneous
  Country: DE (occurrence: DE)
  Receive Date: 20240826
  Receipt Date: 20240826
  Transmission Date: 20241017
  Serious: Yes (Hospitalization, Other)
  Sender: AUROBINDO
  Company Number: DE-ROCHE-2359512

PATIENT
  Age: 82 Year
  Sex: Male
  Weight: 83 kg

DRUGS (6)
  1. BENDAMUSTINE [Suspect]
     Active Substance: BENDAMUSTINE
     Indication: Lymphoma
     Dosage: 178.2 MILLIGRAM (67 DAYS)
     Route: 042
     Dates: start: 20190705
  2. POLATUZUMAB VEDOTIN [Suspect]
     Active Substance: POLATUZUMAB VEDOTIN
     Indication: Lymphoma
     Dosage: 146.7 MILLIGRAM
     Route: 042
     Dates: start: 20190706
  3. FILGRASTIM [Suspect]
     Active Substance: FILGRASTIM
     Indication: Product used for unknown indication
     Dosage: UNK
     Route: 065
  4. RITUXIMAB [Suspect]
     Active Substance: RITUXIMAB
     Indication: Product used for unknown indication
     Dosage: 723.75 MILLIGRAM, ONCE A DAY
     Route: 042
     Dates: start: 20191002, end: 20191002
  5. RITUXIMAB [Suspect]
     Active Substance: RITUXIMAB
     Dosage: 742.5 MILLIGRAM, ONCE A DAY
     Route: 042
     Dates: start: 20190705, end: 20190705
  6. SULFAMETHOXAZOLE\TRIMETHOPRIM [Concomitant]
     Active Substance: SULFAMETHOXAZOLE\TRIMETHOPRIM
     Indication: Prophylaxis
     Dosage: 2880 MILLIGRAM, EVERY WEEK
     Route: 048
     Dates: start: 20190716

REACTIONS (5)
  - Decreased appetite [Not Recovered/Not Resolved]
  - Blood lactate dehydrogenase increased [Not Recovered/Not Resolved]
  - Oedema peripheral [Recovering/Resolving]
  - Pneumonia [Recovered/Resolved]
  - Pleural effusion [Recovered/Resolved]

NARRATIVE: CASE EVENT DATE: 20190711
